FAERS Safety Report 24647508 (Version 4)
Quarter: 2024Q4

REPORT INFORMATION
  Report Type: Spontaneous
  Country: US (occurrence: TR)
  Receive Date: 20241121
  Receipt Date: 20241219
  Transmission Date: 20250115
  Serious: Yes (Hospitalization, Other)
  Sender: MERCK
  Company Number: US-009507513-2411TUR007044

PATIENT
  Age: 63 Year
  Sex: Male
  Weight: 71 kg

DRUGS (7)
  1. PEMBROLIZUMAB [Suspect]
     Active Substance: PEMBROLIZUMAB
     Indication: Non-small cell lung cancer stage IV
     Dosage: 200 MG, CYCLICALLY
     Route: 042
     Dates: start: 20240924
  2. PEMETREXED [Suspect]
     Active Substance: PEMETREXED
     Indication: Non-small cell lung cancer stage IV
     Dosage: 500 MG/M2, CYCLICALLY
     Route: 042
     Dates: start: 20240924
  3. CARBOPLATIN [Suspect]
     Active Substance: CARBOPLATIN
     Indication: Non-small cell lung cancer stage IV
     Dosage: 655 MG, CYCLICALLY
     Route: 042
     Dates: start: 20240924
  4. OLOMORASIB [Suspect]
     Active Substance: OLOMORASIB
     Indication: Non-small cell lung cancer stage IV
     Dosage: 100 MILLIGRAM, BID
     Route: 048
     Dates: start: 20240924, end: 20241004
  5. OLOMORASIB [Suspect]
     Active Substance: OLOMORASIB
     Dosage: 100 MILLIGRAM, BID
     Route: 048
     Dates: start: 20241008, end: 20241008
  6. OLOMORASIB [Suspect]
     Active Substance: OLOMORASIB
     Dosage: 100 MILLIGRAM, BID
     Route: 048
     Dates: start: 20241126
  7. FOLIC ACID [Concomitant]
     Active Substance: FOLIC ACID
     Dosage: UNK
     Dates: start: 20240923

REACTIONS (2)
  - Febrile neutropenia [Recovered/Resolved]
  - Pyrexia [Recovered/Resolved]

NARRATIVE: CASE EVENT DATE: 20241005
